FAERS Safety Report 6692019-5 (Version None)
Quarter: 2010Q2

REPORT INFORMATION
  Report Type: 
  Country: None (occurrence: None)
  Receive Date: 20100422
  Receipt Date: 20100415
  Transmission Date: 20101027
  Serious: Yes (Death)
  Sender: FDA-Public Use
  Company Number: FR-ROCHE-685748

PATIENT
  Sex: Male

DRUGS (2)
  1. AVASTIN [Suspect]
     Route: 042
  2. FOLFOX REGIMEN [Concomitant]
     Dosage: SEVERAL CYCLES

REACTIONS (2)
  - MALIGNANT NEOPLASM PROGRESSION [None]
  - THROMBOCYTOPENIA [None]
